FAERS Safety Report 15453559 (Version 4)
Quarter: 2019Q1

REPORT INFORMATION
  Report Type: Report from Study
  Country: US (occurrence: US)
  Receive Date: 20181001
  Receipt Date: 20190114
  Transmission Date: 20190417
  Serious: Yes (Hospitalization)
  Sender: FDA-Public Use
  Company Number: US-ACTELION-A-US2018-178229

PATIENT
  Age: 66 Year
  Sex: Male
  Weight: 93.88 kg

DRUGS (3)
  1. OPSUMIT [Suspect]
     Active Substance: MACITENTAN
     Indication: PULMONARY ARTERIAL HYPERTENSION
     Dosage: 10 MG, QD
     Route: 048
  2. REMODULIN [Concomitant]
     Active Substance: TREPROSTINIL
  3. SILDENAFIL CITRATE. [Concomitant]
     Active Substance: SILDENAFIL CITRATE

REACTIONS (10)
  - Nephrolithiasis [Unknown]
  - Renal stone removal [Unknown]
  - Diarrhoea [Recovered/Resolved]
  - Stent placement [Unknown]
  - Dermatitis contact [Recovering/Resolving]
  - Application site erythema [Unknown]
  - Catheter site erythema [Recovering/Resolving]
  - Catheter site pruritus [Recovering/Resolving]
  - Application site pruritus [Unknown]
  - Urinary tract disorder [Recovered/Resolved]

NARRATIVE: CASE EVENT DATE: 201809
